FAERS Safety Report 9363125 (Version 3)
Quarter: 2013Q4

REPORT INFORMATION
  Report Type: Spontaneous
  Country: US (occurrence: US)
  Receive Date: 20130624
  Receipt Date: 20131025
  Transmission Date: 20140711
  Serious: Yes (Hospitalization)
  Sender: FDA-Public Use
  Company Number: US-BIOGENIDEC-2013BI054351

PATIENT
  Age: 60 Year
  Sex: Female

DRUGS (1)
  1. AVONEX [Suspect]
     Indication: MULTIPLE SCLEROSIS
     Route: 030
     Dates: start: 20001025

REACTIONS (9)
  - Gastric bypass [Recovered/Resolved]
  - Back disorder [Recovered/Resolved]
  - Intervertebral disc protrusion [Recovered/Resolved]
  - Carpal tunnel syndrome [Unknown]
  - Tendonitis [Unknown]
  - Trigger finger [Unknown]
  - Back pain [Not Recovered/Not Resolved]
  - Weight decreased [Recovered/Resolved]
  - Pain [Unknown]
